FAERS Safety Report 5314516-7 (Version None)
Quarter: 2007Q2

REPORT INFORMATION
  Report Type: 
  Country: None (occurrence: None)
  Receive Date: 20070501
  Receipt Date: 20070501
  Transmission Date: 20071010
  Serious: Yes (Other)
  Sender: FDA-Public Use
  Company Number: None

PATIENT
  Age: 39 Year
  Sex: Male
  Weight: 83.9154 kg

DRUGS (1)
  1. CRESTOR [Suspect]
     Indication: BLOOD CHOLESTEROL INCREASED
     Dosage: 1-10MG ONCE A DAY PO
     Route: 048
     Dates: start: 20070201, end: 20070419

REACTIONS (4)
  - ARTHRALGIA [None]
  - ASTHENIA [None]
  - LABORATORY TEST ABNORMAL [None]
  - MYALGIA [None]
